FAERS Safety Report 12859301 (Version 2)
Quarter: 2019Q3

REPORT INFORMATION
  Report Type: Report from Study
  Country: CA (occurrence: CA)
  Receive Date: 20161018
  Receipt Date: 20190820
  Transmission Date: 20191004
  Serious: Yes (Other)
  Sender: FDA-Public Use
  Company Number: CA-JAZZ-2016-CA-020417

PATIENT

DRUGS (1)
  1. XYREM [Suspect]
     Active Substance: SODIUM OXYBATE
     Indication: NARCOLEPSY
     Route: 048

REACTIONS (5)
  - Bipolar disorder [Unknown]
  - Migraine [Unknown]
  - Panic attack [Unknown]
  - Anxiety [Unknown]
  - Restless legs syndrome [Unknown]
